FAERS Safety Report 7162539-8 (Version None)
Quarter: 2010Q4

REPORT INFORMATION
  Report Type: 
  Country: None (occurrence: None)
  Receive Date: 20101215
  Receipt Date: 20091117
  Transmission Date: 20110411
  Serious: Yes (Other)
  Sender: FDA-Public Use
  Company Number: US-PFIZER INC-2009300313

PATIENT

DRUGS (1)
  1. LYRICA [Suspect]
     Dosage: UNK

REACTIONS (6)
  - AFFECTIVE DISORDER [None]
  - BALANCE DISORDER [None]
  - BLOOD CHOLESTEROL ABNORMAL [None]
  - DRUG INTERACTION [None]
  - VENOUS OCCLUSION [None]
  - WEIGHT INCREASED [None]
